FAERS Safety Report 8985851 (Version 1)
Quarter: 2012Q4

REPORT INFORMATION
  Report Type: Report from Study
  Country: DE (occurrence: DE)
  Receive Date: 20121226
  Receipt Date: 20121226
  Transmission Date: 20130627
  Serious: Yes (Life-Threatening, Hospitalization, Other)
  Sender: FDA-Public Use
  Company Number: DE-ACTELION-A-US2012-76785

PATIENT
  Age: 32 Year
  Sex: Female

DRUGS (1)
  1. VENTAVIS [Suspect]
     Indication: PULMONARY ARTERIAL HYPERTENSION
     Dosage: 2.5 ?g, q4hrs
     Route: 055
     Dates: start: 20120508, end: 20121115

REACTIONS (3)
  - Lung transplant [Not Recovered/Not Resolved]
  - Medical induction of coma [Unknown]
  - Post procedural complication [Unknown]
